FAERS Safety Report 23242462 (Version 1)
Quarter: 2023Q4

REPORT INFORMATION
  Report Type: Report from Study
  Country: US (occurrence: US)
  Receive Date: 20231129
  Receipt Date: 20231129
  Transmission Date: 20240109
  Serious: Yes (Hospitalization)
  Sender: FDA-Public Use
  Company Number: US-ABBVIE-5510475

PATIENT
  Age: 63 Year
  Sex: Male
  Weight: 68.946 kg

DRUGS (8)
  1. TNB-383B [Suspect]
     Active Substance: TNB-383B
     Indication: Plasma cell myeloma refractory
     Route: 042
     Dates: start: 20230912
  2. DEXAMETHASONE [Suspect]
     Active Substance: DEXAMETHASONE
     Indication: Plasma cell myeloma refractory
     Dosage: ON 20 NOV 2023, C3 D1 THE PATIENT RECEIVED 40 MG INTRAVENOUS DOSE.
     Route: 048
     Dates: start: 20230912
  3. DARATUMUMAB [Suspect]
     Active Substance: DARATUMUMAB
     Indication: Plasma cell myeloma refractory
     Route: 058
     Dates: start: 20230913
  4. OXYCODONE [Concomitant]
     Active Substance: OXYCODONE
     Indication: Pain management
     Route: 048
     Dates: start: 20161103
  5. GABAPENTIN [Concomitant]
     Active Substance: GABAPENTIN
     Indication: IVth nerve paralysis
     Dosage: TIME INTERVAL: 0.33333333 DAYS
     Route: 048
     Dates: start: 20230821
  6. ASPIRIN [Concomitant]
     Active Substance: ASPIRIN
     Indication: Thrombosis prophylaxis
     Route: 048
     Dates: start: 20140320
  7. ACYCLOVIR [Concomitant]
     Active Substance: ACYCLOVIR
     Indication: Antiviral prophylaxis
     Route: 048
     Dates: start: 20140320
  8. MIRALAX [Concomitant]
     Active Substance: POLYETHYLENE GLYCOL 3350
     Indication: Constipation
     Route: 048
     Dates: start: 20230717

REACTIONS (1)
  - Febrile neutropenia [Recovered/Resolved]

NARRATIVE: CASE EVENT DATE: 20231122
